FAERS Safety Report 6747691-8 (Version None)
Quarter: 2010Q2

REPORT INFORMATION
  Report Type: 
  Country: None (occurrence: None)
  Receive Date: 20100528
  Receipt Date: 20100524
  Transmission Date: 20101027
  Serious: Yes (Death, Hospitalization, Other)
  Sender: FDA-Public Use
  Company Number: PHHY2010JP23540

PATIENT
  Age: 51 Year
  Sex: Female

DRUGS (4)
  1. NEORAL [Suspect]
     Indication: PUSTULAR PSORIASIS
     Dosage: 100 MG, DAILY
     Route: 048
     Dates: start: 20090810, end: 20090812
  2. NEORAL [Suspect]
     Dosage: 100 MG, DAILY
     Route: 048
     Dates: start: 20090909, end: 20090924
  3. NEORAL [Suspect]
     Dosage: 50 MG, DAILY
     Route: 048
     Dates: start: 20090925, end: 20091012
  4. STEROIDS NOS [Suspect]

REACTIONS (10)
  - ABDOMINAL PAIN [None]
  - CARDIAC FAILURE [None]
  - COMPUTERISED TOMOGRAM ABDOMEN ABNORMAL [None]
  - CYTOMEGALOVIRUS ENTEROCOLITIS [None]
  - DIALYSIS [None]
  - HYPOTENSION [None]
  - LARGE INTESTINE PERFORATION [None]
  - OEDEMA [None]
  - RENAL FAILURE CHRONIC [None]
  - SURGERY [None]
